FAERS Safety Report 24042209 (Version 2)
Quarter: 2024Q4

REPORT INFORMATION
  Report Type: Report from Study
  Country: CL (occurrence: CL)
  Receive Date: 20240702
  Receipt Date: 20241212
  Transmission Date: 20250114
  Serious: Yes (Other)
  Sender: JOHNSON AND JOHNSON
  Company Number: CL-JNJFOC-20240670038

PATIENT
  Age: 68 Year
  Sex: Female

DRUGS (1)
  1. SIMPONI [Suspect]
     Active Substance: GOLIMUMAB
     Indication: Rheumatoid arthritis
     Dates: start: 20230530, end: 20241123

REACTIONS (7)
  - Thyroid cancer [Unknown]
  - Hypothyroidism [Unknown]
  - Visual impairment [Unknown]
  - Nasopharyngitis [Unknown]
  - Lower respiratory tract inflammation [Unknown]
  - Arthritis [Unknown]
  - Nodule [Unknown]

NARRATIVE: CASE EVENT DATE: 20240101
